FAERS Safety Report 8674251 (Version 4)
Quarter: 2014Q2

REPORT INFORMATION
  Report Type: Spontaneous
  Country: US (occurrence: US)
  Receive Date: 20120719
  Receipt Date: 20140623
  Transmission Date: 20141212
  Serious: Yes (Hospitalization, Other)
  Sender: FDA-Public Use
  Company Number: US-009507513-1207USA004221

PATIENT
  Sex: Female
  Weight: 65.76 kg

DRUGS (1)
  1. NUVARING [Suspect]
     Indication: CONTRACEPTION
     Dosage: 1 EVERY 3 WKS, REMOVE FOR 1 WK
     Route: 067
     Dates: start: 20021213, end: 20101230

REACTIONS (6)
  - Cerebral venous thrombosis [Recovered/Resolved]
  - Sinusitis [Unknown]
  - Bronchitis [Unknown]
  - Melanocytic naevus [Unknown]
  - Rosacea [Unknown]
  - Seborrhoeic keratosis [Unknown]
